FAERS Safety Report 8183013-6 (Version None)
Quarter: 2012Q1

REPORT INFORMATION
  Report Type: 
  Country: None (occurrence: None)
  Receive Date: 20120305
  Receipt Date: 20111118
  Transmission Date: 20120608
  Serious: No
  Sender: FDA-Public Use
  Company Number: US-BRISTOL-MYERS SQUIBB COMPANY-16181133

PATIENT
  Age: 75 Year
  Sex: Male
  Weight: 89 kg

DRUGS (1)
  1. KOMBIGLYZE XR [Suspect]
     Indication: DIABETES MELLITUS
     Dosage: RESTARTED:10OCT11, EXP FEB13,PRES: 5332171DF=5/1000 UNITS NOS. FORM: KOMBIGLYZE XRTABS 5MG/1000MG
     Route: 048
     Dates: start: 20111006

REACTIONS (3)
  - NAUSEA [None]
  - DIARRHOEA [None]
  - DYSPEPSIA [None]
